FAERS Safety Report 5959795-8 (Version None)
Quarter: 2008Q4

REPORT INFORMATION
  Report Type: 
  Country: None (occurrence: None)
  Receive Date: 20081120
  Receipt Date: 20081110
  Transmission Date: 20090506
  Serious: Yes (Death, Hospitalization)
  Sender: FDA-Public Use
  Company Number: A0747134A

PATIENT
  Age: 82 Year
  Sex: Female

DRUGS (4)
  1. AVANDIA [Suspect]
     Dates: start: 20060705, end: 20070412
  2. NORVASC [Concomitant]
  3. DIOVAN [Concomitant]
  4. LIPITOR [Concomitant]

REACTIONS (3)
  - CARDIAC FAILURE CONGESTIVE [None]
  - MYOCARDIAL INFARCTION [None]
  - RENAL FAILURE [None]
